FAERS Safety Report 24576462 (Version 1)
Quarter: 2024Q4

REPORT INFORMATION
  Report Type: Spontaneous
  Country: GB (occurrence: GB)
  Receive Date: 20241104
  Receipt Date: 20241104
  Transmission Date: 20250115
  Serious: Yes (Other)
  Sender: PFIZER
  Company Number: None

PATIENT
  Sex: Female

DRUGS (1)
  1. RIMEGEPANT [Suspect]
     Active Substance: RIMEGEPANT
     Dosage: 75 MG

REACTIONS (3)
  - Arthralgia [Unknown]
  - Musculoskeletal stiffness [Unknown]
  - Neck pain [Unknown]
